FAERS Safety Report 8277919-7 (Version None)
Quarter: 2012Q2

REPORT INFORMATION
  Report Type: 
  Country: None (occurrence: None)
  Receive Date: 20120412
  Receipt Date: 20120402
  Transmission Date: 20120825
  Serious: Yes (Other)
  Sender: FDA-Public Use
  Company Number: JP-ELI_LILLY_AND_COMPANY-JP201202004081

PATIENT
  Age: 75 Year
  Sex: Female

DRUGS (1)
  1. FORTEO [Suspect]
     Dosage: UNK
     Route: 058

REACTIONS (10)
  - INJECTION SITE HAEMATOMA [None]
  - FACE INJURY [None]
  - HYPOPHAGIA [None]
  - NAUSEA [None]
  - FALL [None]
  - LIMB INJURY [None]
  - TOOTH INJURY [None]
  - LOSS OF CONSCIOUSNESS [None]
  - PAIN IN EXTREMITY [None]
  - TOOTH LOSS [None]
